FAERS Safety Report 8519199-0 (Version None)
Quarter: 2012Q3

REPORT INFORMATION
  Report Type: 
  Country: None (occurrence: None)
  Receive Date: 20120718
  Receipt Date: 20120709
  Transmission Date: 20120928
  Serious: Yes (Other)
  Sender: FDA-Public Use
  Company Number: ES-ELI_LILLY_AND_COMPANY-ES201207003312

PATIENT
  Age: 58 Year
  Sex: Male

DRUGS (4)
  1. CISPLATIN [Concomitant]
     Route: 042
  2. HEPARIN SODIUM INJ [Concomitant]
  3. GEMCITABINE HYDROCHLORIDE [Suspect]
     Indication: LARGE CELL CARCINOMA OF THE RESPIRATORY TRACT STAGE UNSPECIFIED
     Route: 042
  4. BISPHOSPHONATES [Concomitant]

REACTIONS (1)
  - CEREBRAL INFARCTION [None]
